FAERS Safety Report 9188244 (Version 4)
Quarter: 2013Q3

REPORT INFORMATION
  Report Type: Spontaneous
  Country: GB (occurrence: GB)
  Receive Date: 20130325
  Receipt Date: 20130709
  Transmission Date: 20140515
  Serious: Yes (Hospitalization, Other)
  Sender: FDA-Public Use
  Company Number: GB-B.I. PHARMACEUTICALS,INC./RIDGEFIELD-2013-UK-00402UK

PATIENT
  Age: 80 Year
  Sex: Male

DRUGS (6)
  1. PRADAXA [Suspect]
     Indication: THROMBOSIS PROPHYLAXIS
     Dosage: 220 MG
     Route: 048
     Dates: start: 20130304, end: 20130327
  2. LEVOTHYROXINE [Concomitant]
     Dosage: 100 MG
     Route: 048
  3. VALSARTAN [Concomitant]
     Dosage: 160 MG
     Route: 048
  4. LANSOPRAZOLE [Concomitant]
     Dosage: 15 MG
     Route: 048
  5. METOCLOPRAMIDE [Concomitant]
     Dosage: 30 MG
     Route: 048
  6. HUMULIN [Concomitant]
     Dosage: 40+50
     Route: 058

REACTIONS (3)
  - Staphylococcal infection [Not Recovered/Not Resolved]
  - Impaired healing [Recovered/Resolved]
  - Wound secretion [Recovered/Resolved]
